FAERS Safety Report 17674020 (Version 3)
Quarter: 2025Q2

REPORT INFORMATION
  Report Type: Spontaneous
  Country: DE (occurrence: DE)
  Receive Date: 20200415
  Receipt Date: 20250627
  Transmission Date: 20250717
  Serious: Yes (Other)
  Sender: AUROBINDO
  Company Number: DE-PFIZER INC-2019453490

PATIENT
  Age: 18 Month
  Sex: Male
  Weight: 2.6 kg

DRUGS (5)
  1. FLUDARABINE [Suspect]
     Active Substance: FLUDARABINE PHOSPHATE
     Indication: Chemotherapy
     Dosage: 40 MILLIGRAM/SQ. METER, FOUR TIMES/DAY
     Route: 065
  2. FLUDARABINE [Suspect]
     Active Substance: FLUDARABINE PHOSPHATE
     Indication: Bone marrow conditioning regimen
  3. MELPHALAN [Suspect]
     Active Substance: MELPHALAN
     Indication: Chemotherapy
     Dosage: 60 MILLIGRAM/SQ. METER, TWO TIMES A DAY
     Route: 065
  4. MELPHALAN [Suspect]
     Active Substance: MELPHALAN
     Indication: Bone marrow conditioning regimen
  5. THYMOGLOBULIN [Suspect]
     Active Substance: LAPINE T-LYMPHOCYTE IMMUNE GLOBULIN
     Indication: Chemotherapy
     Route: 065

REACTIONS (9)
  - Skin depigmentation [Unknown]
  - Dilated cardiomyopathy [Unknown]
  - Oedema [Unknown]
  - Hypertension [Unknown]
  - Acute kidney injury [Unknown]
  - Dwarfism [Unknown]
  - Haemolytic uraemic syndrome [Unknown]
  - Skin reaction [Unknown]
  - Product use in unapproved indication [Unknown]
